FAERS Safety Report 17037707 (Version 2)
Quarter: 2020Q1

REPORT INFORMATION
  Report Type: Report from Study
  Country: US (occurrence: US)
  Receive Date: 20191115
  Receipt Date: 20200306
  Transmission Date: 20200409
  Serious: Yes (Other)
  Sender: FDA-Public Use
  Company Number: US-ROCHE-2360553

PATIENT
  Age: 77 Year
  Sex: Male
  Weight: 88 kg

DRUGS (9)
  1. RANIBIZUMAB. [Suspect]
     Active Substance: RANIBIZUMAB
     Indication: NEOVASCULAR AGE-RELATED MACULAR DEGENERATION
     Dosage: ON 26/FEB/2019, HE RECEIVED MOST RECENT DOSE 100 MG/ML PRIOR TO AE (ADVERSE EVENT) AND SAE (SEVERE A
     Route: 050
  2. CIALIS [Concomitant]
     Active Substance: TADALAFIL
     Route: 048
     Dates: start: 20050914, end: 2019
  3. OFLOXACIN. [Concomitant]
     Active Substance: OFLOXACIN
     Route: 061
     Dates: start: 20190815, end: 20190817
  4. ATORVASTATIN [Concomitant]
     Active Substance: ATORVASTATIN
     Indication: HYPERLIPIDAEMIA
     Route: 048
     Dates: start: 20041104
  5. VITAMIN D3 [Concomitant]
     Active Substance: CHOLECALCIFEROL
     Dosage: TOTAL DAILY DOSE: 1000 U
     Route: 048
     Dates: start: 20190907
  6. RANIBIZUMAB. [Suspect]
     Active Substance: RANIBIZUMAB
     Indication: NEOVASCULAR AGE-RELATED MACULAR DEGENERATION
     Dosage: SPONSOR SUPPLIED FELLOW EYE 10 MG/ML?ON 19 /JUL/2019, HE RECEIVED MOST RECENT DOSE 10 MG/ML OF SPONS
     Route: 050
  7. LISINOPRIL. [Concomitant]
     Active Substance: LISINOPRIL
     Indication: HYPERTENSION
     Route: 048
     Dates: start: 20131126, end: 20190930
  8. LISINOPRIL. [Concomitant]
     Active Substance: LISINOPRIL
     Route: 048
     Dates: start: 20190930
  9. VITAMIN D3 [Concomitant]
     Active Substance: CHOLECALCIFEROL
     Indication: OSTEOARTHRITIS
     Dosage: 2000 U (UNIT)
     Route: 048
     Dates: start: 20111005, end: 20190907

REACTIONS (1)
  - Vitreous haemorrhage [Recovered/Resolved]

NARRATIVE: CASE EVENT DATE: 20190719
